FAERS Safety Report 19127057 (Version 1)
Quarter: 2021Q2

REPORT INFORMATION
  Report Type: Spontaneous
  Country: US (occurrence: US)
  Receive Date: 20210413
  Receipt Date: 20210413
  Transmission Date: 20210717
  Serious: No
  Sender: FDA-Public Use
  Company Number: None

PATIENT
  Age: 76 Year
  Sex: Female
  Weight: 52.6 kg

DRUGS (11)
  1. CAPECITABINE. [Suspect]
     Active Substance: CAPECITABINE
     Indication: BREAST CANCER
     Route: 048
     Dates: start: 20210326
  2. VITAMIN D3 COMPLETE [Concomitant]
  3. EXEMESTANE. [Concomitant]
     Active Substance: EXEMESTANE
  4. MULTIVITAMINS [Concomitant]
     Active Substance: VITAMINS
  5. FUROSEMIDE. [Concomitant]
     Active Substance: FUROSEMIDE
  6. CAPECITABINE. [Suspect]
     Active Substance: CAPECITABINE
     Indication: BREAST CANCER
     Route: 048
     Dates: start: 20210326
  7. PROCHLORPERAZINE MALEATE. [Concomitant]
     Active Substance: PROCHLORPERAZINE MALEATE
  8. PHENOBARBITAL. [Concomitant]
     Active Substance: PHENOBARBITAL
  9. KEPPRA [Concomitant]
     Active Substance: LEVETIRACETAM
  10. VITAMIN C [Concomitant]
     Active Substance: ASCORBIC ACID
  11. CORAL CALCIUM [Concomitant]
     Active Substance: DIETARY SUPPLEMENT

REACTIONS (3)
  - Pain [None]
  - Erythema [None]
  - Paraesthesia [None]

NARRATIVE: CASE EVENT DATE: 20210401
